FAERS Safety Report 5573861-0 (Version None)
Quarter: 2007Q4

REPORT INFORMATION
  Report Type: 
  Country: None (occurrence: None)
  Receive Date: 20071226
  Receipt Date: 20071213
  Transmission Date: 20080405
  Serious: Yes (Hospitalization)
  Sender: FDA-Public Use
  Company Number: GB-RANBAXY-2007RR-12070

PATIENT

DRUGS (5)
  1. TAMSULOSIN HCL [Suspect]
     Indication: URINARY TRACT INFECTION
     Dosage: 400 UG, UNK
     Route: 048
     Dates: start: 20071101
  2. ASPIRIN TABLETS BP 300MG [Concomitant]
     Dosage: 75 MG, QD
  3. FLECAINIDE ACETATE [Concomitant]
     Dosage: 50 MG, BID
     Route: 048
  4. LISINOPRIL [Concomitant]
     Dosage: 15 MG, QD
     Route: 048
  5. METOPROLOL [Concomitant]
     Dosage: 25 MG, UNK
     Route: 048

REACTIONS (2)
  - GENERALISED OEDEMA [None]
  - RASH MACULO-PAPULAR [None]
